FAERS Safety Report 11112316 (Version 3)
Quarter: 2015Q2

REPORT INFORMATION
  Report Type: Spontaneous
  Country: US (occurrence: US)
  Receive Date: 20150514
  Receipt Date: 20150529
  Transmission Date: 20150821
  Serious: No
  Sender: FDA-Public Use
  Company Number: US-PFIZER INC-2015162322

PATIENT
  Age: 55 Year
  Sex: Male

DRUGS (2)
  1. IBRANCE [Suspect]
     Active Substance: PALBOCICLIB
     Dosage: 100 MG, DAILY (3 WEEKS ON + 1 WEEK OFF)
     Route: 048
  2. IBRANCE [Suspect]
     Active Substance: PALBOCICLIB
     Dosage: 125 MG, 1X/DAY (X 3 WEEKS)
     Dates: start: 20150424

REACTIONS (5)
  - Paraesthesia [Unknown]
  - Vomiting [Unknown]
  - Dizziness [Unknown]
  - Rash pruritic [Unknown]
  - Product use issue [Unknown]
